FAERS Safety Report 11754372 (Version 1)
Quarter: 2015Q4

REPORT INFORMATION
  Report Type: Spontaneous
  Country: US (occurrence: None)
  Receive Date: 20151118
  Receipt Date: 20151118
  Transmission Date: 20160304
  Serious: Yes (Life-Threatening, Hospitalization, Disabling)
  Sender: FDA-Public Use
  Company Number: None

PATIENT
  Age: 81 Year
  Sex: Female
  Weight: 52.62 kg

DRUGS (13)
  1. LISINOPRIL-HCTZ (PRINZIDE) [Concomitant]
  2. TYLENOL [Concomitant]
     Active Substance: ACETAMINOPHEN
  3. MYLANTA [Concomitant]
     Active Substance: ALUMINUM HYDROXIDE\DIMETHICONE\MAGNESIUM HYDROXIDE
  4. ATENOLOL (TENORMIN) [Concomitant]
  5. ZETIA [Concomitant]
     Active Substance: EZETIMIBE
  6. DICYCLOMINE [Suspect]
     Active Substance: DICYCLOMINE HYDROCHLORIDE
     Indication: IRRITABLE BOWEL SYNDROME
     Dosage: BEFORE MEALS + BEDTIME
     Route: 048
     Dates: start: 20150813, end: 20150813
  7. SYNTHROID [Concomitant]
     Active Substance: LEVOTHYROXINE SODIUM
  8. AZELASTINE [Concomitant]
     Active Substance: AZELASTINE
  9. OXYGEN - HOME + PORTABLE [Concomitant]
  10. GAS-X [Concomitant]
     Active Substance: DIMETHICONE
  11. ALPRAZOLAM (XANAX) [Concomitant]
  12. ALBUTEROL SULFATE. [Concomitant]
     Active Substance: ALBUTEROL SULFATE
  13. XARELTO [Concomitant]
     Active Substance: RIVAROXABAN

REACTIONS (14)
  - Atrial fibrillation [None]
  - Dizziness [None]
  - Cardiac disorder [None]
  - Pain [None]
  - Chromaturia [None]
  - Hypotension [None]
  - Vomiting [None]
  - Abdominal discomfort [None]
  - Asthenia [None]
  - Chills [None]
  - Malaise [None]
  - Gait disturbance [None]
  - Nausea [None]
  - Abdominal pain upper [None]

NARRATIVE: CASE EVENT DATE: 20150813
